FAERS Safety Report 6675477-1 (Version None)
Quarter: 2010Q2

REPORT INFORMATION
  Report Type: 
  Country: None (occurrence: None)
  Receive Date: 20100409
  Receipt Date: 20100331
  Transmission Date: 20101027
  Serious: Yes (Other)
  Sender: FDA-Public Use
  Company Number: B0595410A

PATIENT
  Sex: Female
  Weight: 54 kg

DRUGS (11)
  1. LAPATINIB [Suspect]
     Indication: BREAST CANCER
     Dosage: 1500MG PER DAY
     Route: 048
     Dates: start: 20080922
  2. PACLITAXEL [Suspect]
     Indication: BREAST CANCER
     Dosage: 80MGM2 WEEKLY
     Route: 042
     Dates: start: 20081104
  3. FLUOROURACIL [Suspect]
     Dates: start: 20090327
  4. EPIRUBICIN [Suspect]
     Dates: start: 20090327
  5. CYCLOPHOSPHAMIDE [Suspect]
     Dates: start: 20090327
  6. OMEPRAZOLE [Concomitant]
     Route: 048
     Dates: start: 20090204
  7. DOMPERIDONE [Concomitant]
     Indication: VOMITING
     Route: 048
     Dates: start: 20090417
  8. NORDAZ [Concomitant]
     Indication: ANXIETY
     Route: 048
     Dates: start: 20090204
  9. DEROXAT [Concomitant]
     Indication: DEPRESSION
     Route: 048
     Dates: start: 20080101
  10. DICETEL [Concomitant]
     Route: 048
     Dates: start: 20090417
  11. LOVENOX [Concomitant]
     Indication: ANTICOAGULANT THERAPY
     Route: 048
     Dates: start: 20090417, end: 20090811

REACTIONS (1)
  - NEUTROPENIA [None]
